FAERS Safety Report 9350291 (Version 1)
Quarter: 2013Q2

REPORT INFORMATION
  Report Type: Spontaneous
  Country: US (occurrence: US)
  Receive Date: 20130617
  Receipt Date: 20130617
  Transmission Date: 20140414
  Serious: Yes (Hospitalization, Other)
  Sender: FDA-Public Use
  Company Number: US-SHIRE-ALL1-2013-03846

PATIENT
  Age: 34 Year
  Sex: Female

DRUGS (7)
  1. PENTASA [Suspect]
     Indication: CROHN^S DISEASE
     Dosage: 4000 MG, 1X/DAY:QD
     Route: 048
     Dates: start: 2004, end: 201207
  2. HUMIRA [Suspect]
     Indication: CROHN^S DISEASE
     Dosage: UNK UNK, UNKNOWN
     Route: 065
     Dates: start: 20120102, end: 20120102
  3. HUMIRA [Suspect]
     Dosage: 80 MG, UNKNOWN
     Route: 065
     Dates: start: 20120116, end: 20120116
  4. HUMIRA [Suspect]
     Dosage: 40 MG, 1X/2WKS
     Dates: end: 201208
  5. HUMIRA [Suspect]
     Dosage: UNK UNK, 1X/2WKS
     Route: 065
     Dates: start: 20121015
  6. PREDNISONE [Concomitant]
     Indication: CROHN^S DISEASE
     Dosage: 10 MG, 1X/DAY:QD
     Route: 048
  7. LEXAPRO [Concomitant]
     Indication: DEPRESSION
     Dosage: 20 MG, 1X/DAY:QD
     Route: 048

REACTIONS (7)
  - Amniotic fluid volume decreased [Recovered/Resolved]
  - Hypertension [Unknown]
  - Pain in extremity [Unknown]
  - Acne [Unknown]
  - Maternal exposure during pregnancy [Recovered/Resolved]
  - Drug ineffective [Recovered/Resolved]
  - Off label use [Recovered/Resolved]
